FAERS Safety Report 18505683 (Version 2)
Quarter: 2020Q4

REPORT INFORMATION
  Report Type: Spontaneous
  Country: CN (occurrence: CN)
  Receive Date: 20201116
  Receipt Date: 20201118
  Transmission Date: 20210114
  Serious: No
  Sender: FDA-Public Use
  Company Number: CN-GLAXOSMITHKLINE-CN2020APC219684

PATIENT
  Age: 3 Year
  Sex: Male
  Weight: 17 kg

DRUGS (1)
  1. CEFUROXIME SODIUM. [Suspect]
     Active Substance: CEFUROXIME SODIUM
     Indication: SYMPTOMATIC TREATMENT
     Dosage: 0.2 G, QD
     Route: 042
     Dates: start: 20201019, end: 20201019

REACTIONS (4)
  - Urticaria papular [Recovered/Resolved]
  - Rash [Recovered/Resolved]
  - Eyelid oedema [Recovered/Resolved]
  - Drug hypersensitivity [Recovered/Resolved]

NARRATIVE: CASE EVENT DATE: 20201019
